FAERS Safety Report 7046310-3 (Version None)
Quarter: 2010Q4

REPORT INFORMATION
  Report Type: 
  Country: None (occurrence: None)
  Receive Date: 20101014
  Receipt Date: 20101006
  Transmission Date: 20110411
  Serious: Yes (Hospitalization)
  Sender: FDA-Public Use
  Company Number: B0679232A

PATIENT
  Sex: Female

DRUGS (1)
  1. AUGMENTIN '125' [Suspect]
     Indication: DENTAL OPERATION
     Dosage: 1G PER DAY
     Route: 048
     Dates: start: 20100922, end: 20100922

REACTIONS (4)
  - NAUSEA [None]
  - TACHYCARDIA [None]
  - URTICARIA [None]
  - VOMITING [None]
